FAERS Safety Report 6218184-1 (Version None)
Quarter: 2009Q2

REPORT INFORMATION
  Report Type: 
  Country: None (occurrence: None)
  Receive Date: 20090608
  Receipt Date: 20090528
  Transmission Date: 20091009
  Serious: Yes (Death)
  Sender: FDA-Public Use
  Company Number: TR-NOVOPROD-278108

PATIENT
  Weight: 4.1 kg

DRUGS (3)
  1. ACTRAPID HM PENFILL [Suspect]
     Indication: DRUG USE FOR UNKNOWN INDICATION
     Dosage: 36 IU, QD
     Route: 064
     Dates: start: 20080218
  2. INSULATARD HM PENFILL [Suspect]
     Indication: DRUG USE FOR UNKNOWN INDICATION
     Dosage: 24 IU, QD
     Route: 064
     Dates: start: 20080218
  3. INSULATARD HM PENFILL [Suspect]

REACTIONS (5)
  - CARDIO-RESPIRATORY ARREST [None]
  - FOETAL DISTRESS SYNDROME [None]
  - HYPERTROPHIC CARDIOMYOPATHY [None]
  - MULTI-ORGAN FAILURE [None]
  - SEPSIS [None]
